FAERS Safety Report 8247625 (Version 2)
Quarter: 2012Q4

REPORT INFORMATION
  Report Type: Report from Study
  Country: US (occurrence: US)
  Receive Date: 20111116
  Receipt Date: 20121221
  Transmission Date: 20130627
  Serious: Yes (Hospitalization)
  Sender: FDA-Public Use
  Company Number: US-PFIZER INC-2011245030

PATIENT
  Age: 64 Year
  Sex: Female

DRUGS (25)
  1. CADUET [Suspect]
     Indication: HYPERTENSION
     Dosage: 10 mg/80 mg, 1x/day
     Route: 048
     Dates: start: 20070321
  2. CADUET [Suspect]
     Indication: HYPERLIPIDEMIA
  3. ATACAND [Suspect]
     Indication: HYPERTENSION
     Dosage: 32 mg, 1x/day
     Route: 048
     Dates: start: 20070216
  4. AMITRIPTYLINE [Concomitant]
     Dosage: UNK
  5. ACETYLSALICYLIC ACID [Concomitant]
     Dosage: UNK
  6. BACLOFEN [Concomitant]
     Dosage: UNK
  7. CALCITONIN [Concomitant]
     Dosage: UNK
  8. CARVEDILOL [Concomitant]
     Dosage: UNK
  9. BETAMETHASONE DIPROPIONATE/CLOTRIMAZOLE [Concomitant]
     Dosage: UNK
  10. FERROUS SULFATE [Concomitant]
     Dosage: UNK
  11. HUMULIN [Concomitant]
     Dosage: UNK
  12. IMDUR [Concomitant]
     Dosage: UNK
  13. LASIX [Concomitant]
     Dosage: UNK
  14. PREDNISONE [Concomitant]
     Dosage: UNK
     Dates: start: 20110929
  15. LYRICA [Concomitant]
     Dosage: UNK
  16. NIACIN [Concomitant]
     Dosage: UNK
  17. NITROGLYCERIN [Concomitant]
     Dosage: UNK
  18. PLAVIX [Concomitant]
     Dosage: UNK
  19. POTASSIUM CHLORIDE [Concomitant]
     Dosage: UNK
  20. PREDNISONE ACETATE [Concomitant]
     Dosage: UNK
  21. PROTONIX [Concomitant]
     Dosage: UNK
  22. RANEXA [Concomitant]
     Dosage: UNK
  23. VITAMIN D [Concomitant]
     Dosage: UNK
  24. ZETIA [Concomitant]
     Dosage: UNK
  25. B-VOLTAREN [Concomitant]
     Dosage: UNK

REACTIONS (2)
  - Cardiac failure congestive [Recovered/Resolved]
  - Myocardial infarction [Recovered/Resolved]
